FAERS Safety Report 7668672-6 (Version None)
Quarter: 2011Q3

REPORT INFORMATION
  Report Type: 
  Country: None (occurrence: None)
  Receive Date: 20110808
  Receipt Date: 20110728
  Transmission Date: 20111222
  Serious: Yes (Other)
  Sender: FDA-Public Use
  Company Number: JP-BAYER-200910865BYL

PATIENT
  Age: 57 Year
  Sex: Male
  Weight: 73 kg

DRUGS (14)
  1. MAGNESIUM OXIDE [Concomitant]
     Dosage: AFTER MEALS
     Route: 048
     Dates: start: 20090219
  2. LOXOPROFEN [Concomitant]
     Dosage: AFTER MEALS
     Route: 048
     Dates: start: 20090205, end: 20110105
  3. ALLOPURINOL [Concomitant]
     Dosage: 100 MG, QD
     Route: 048
     Dates: start: 20091028
  4. SELBEX [Concomitant]
     Indication: PROPHYLAXIS AGAINST GASTROINTESTINAL ULCER
     Dosage: AFTER MEALS
     Route: 048
     Dates: start: 20090205, end: 20110105
  5. GENTACIN [Concomitant]
     Route: 061
  6. SORAFENIB (RAF KINASE INHIBITOR) [Suspect]
     Dosage: DAILY DOSE 600 MG
     Route: 048
     Dates: start: 20091226
  7. SORAFENIB (RAF KINASE INHIBITOR) [Suspect]
     Dosage: DAILY DOSE 400 MG
     Route: 048
     Dates: start: 20090804, end: 20091225
  8. SORAFENIB (RAF KINASE INHIBITOR) [Suspect]
     Indication: RENAL CELL CARCINOMA
     Dosage: 400 MG, BID
     Route: 048
     Dates: start: 20090205, end: 20090305
  9. SORAFENIB (RAF KINASE INHIBITOR) [Suspect]
     Dosage: DAILY DOSE 400 MG
     Route: 048
     Dates: start: 20090306, end: 20090707
  10. ALMETA [Concomitant]
     Route: 061
  11. AMLODIPINE [Concomitant]
     Dosage: AFTER BREAKFAST
     Route: 048
  12. CANDESARTAN CILEXETIL [Concomitant]
     Dosage: AFTER BREAKFAST
     Route: 048
  13. UREPEARL [Concomitant]
     Route: 061
  14. MEIACT [Concomitant]
     Dosage: AFTER MEALS
     Route: 048

REACTIONS (6)
  - HYPERTENSION [None]
  - PALMAR-PLANTAR ERYTHRODYSAESTHESIA SYNDROME [None]
  - HAEMOPTYSIS [None]
  - HEPATIC FUNCTION ABNORMAL [None]
  - HYPERURICAEMIA [None]
  - ALOPECIA [None]
